FAERS Safety Report 18882475 (Version 1)
Quarter: 2021Q1

REPORT INFORMATION
  Report Type: Spontaneous
  Country: US (occurrence: US)
  Receive Date: 20210212
  Receipt Date: 20210212
  Transmission Date: 20210420
  Serious: No
  Sender: FDA-Public Use
  Company Number: US-BEH-2021128330

PATIENT
  Sex: Female

DRUGS (2)
  1. PRIVIGEN [Suspect]
     Active Substance: HUMAN IMMUNOGLOBULIN G
     Dosage: 5 GRAM, EVERY 6 WEEKS
     Route: 042
     Dates: start: 20200313
  2. PRIVIGEN [Suspect]
     Active Substance: HUMAN IMMUNOGLOBULIN G
     Indication: STIFF PERSON SYNDROME
     Dosage: 30 GRAM, EVERY 6 WEEKS
     Route: 042
     Dates: start: 20200313

REACTIONS (2)
  - Blood pressure increased [Recovered/Resolved]
  - Panic attack [Unknown]
